FAERS Safety Report 9165706 (Version 1)
Quarter: 2013Q1

REPORT INFORMATION
  Report Type: Spontaneous
  Country: DE (occurrence: None)
  Receive Date: 20130228
  Receipt Date: 20130228
  Transmission Date: 20140127
  Serious: Yes (Other)
  Sender: FDA-Public Use
  Company Number: TPA2013A01676

PATIENT
  Age: 57 Year
  Sex: Male

DRUGS (8)
  1. ADENURIC [Suspect]
     Indication: HYPERURICAEMIA
     Dosage: 1 IN 1 D
     Route: 048
     Dates: start: 201210, end: 20121128
  2. PROGRAF (TACROLIMUS) [Concomitant]
  3. PEDUL (PAMTIDINE) [Concomitant]
  4. DEKRISTOL (COLECALCIFEROL) [Concomitant]
  5. ASS (ACETYLSALICYCLIC ACID) [Concomitant]
  6. ATACAND (CANDESARTAN CILEXETIL) [Concomitant]
  7. SIMVASTATIN (SIMVASTATIN) [Concomitant]
  8. DECORTIN H (PREDNISOLONE) [Concomitant]

REACTIONS (3)
  - Drug level increased [None]
  - Blood creatinine increased [None]
  - Drug level fluctuating [None]
